FAERS Safety Report 9416501 (Version 1)
Quarter: 2013Q3

REPORT INFORMATION
  Report Type: Report from Study
  Country: DE (occurrence: DE)
  Receive Date: 20130724
  Receipt Date: 20130724
  Transmission Date: 20140515
  Serious: Yes (Hospitalization)
  Sender: FDA-Public Use
  Company Number: PHHO2012DE018494

PATIENT
  Age: 69 Year
  Sex: Male
  Weight: 120 kg

DRUGS (3)
  1. QVA149 [Suspect]
     Indication: CHRONIC OBSTRUCTIVE PULMONARY DISEASE
     Dosage: 1 DF, QD (110/50 UG QD)
  2. TRAMADOL [Concomitant]
     Dosage: UNK
  3. THYROXIN [Concomitant]
     Dosage: UNK

REACTIONS (2)
  - Chronic obstructive pulmonary disease [Recovered/Resolved]
  - Cor pulmonale [Recovered/Resolved]
